FAERS Safety Report 24264581 (Version 1)
Quarter: 2024Q3

REPORT INFORMATION
  Report Type: Spontaneous
  Country: RU (occurrence: RU)
  Receive Date: 20240829
  Receipt Date: 20240829
  Transmission Date: 20241017
  Serious: Yes (Life-Threatening, Hospitalization, Other)
  Sender: SANDOZ
  Company Number: RU-SANDOZ-SDZ2024RU076260

PATIENT
  Sex: Female
  Weight: 78 kg

DRUGS (2)
  1. AMOXICILLIN\CLAVULANATE POTASSIUM [Suspect]
     Active Substance: AMOXICILLIN\CLAVULANATE POTASSIUM
     Indication: Pyelonephritis
     Dosage: 1000+200 MG EVERY 12 HOURS, CONSIDERING CREATININE
     Route: 041
     Dates: start: 20240815, end: 20240816
  2. AMOXICILLIN\CLAVULANATE POTASSIUM [Suspect]
     Active Substance: AMOXICILLIN\CLAVULANATE POTASSIUM
     Dosage: 1000+200MG EVERY 8 HOURS
     Route: 041
     Dates: start: 20240817, end: 20240817

REACTIONS (4)
  - Drug ineffective [Recovering/Resolving]
  - Drug ineffective [Recovering/Resolving]
  - Drug ineffective [Recovering/Resolving]
  - Suspected product quality issue [Recovering/Resolving]

NARRATIVE: CASE EVENT DATE: 20240815
